FAERS Safety Report 7705028-1 (Version None)
Quarter: 2011Q3

REPORT INFORMATION
  Report Type: 
  Country: None (occurrence: None)
  Receive Date: 20110823
  Receipt Date: 20110822
  Transmission Date: 20111222
  Serious: Yes (Hospitalization)
  Sender: FDA-Public Use
  Company Number: CH-PFIZER INC-2011155699

PATIENT
  Age: 25 Year
  Sex: Female

DRUGS (1)
  1. EFFEXOR XR [Suspect]
     Dosage: 1.875 G, SINGLE
     Route: 048
     Dates: start: 20110707, end: 20110707

REACTIONS (6)
  - NAUSEA [None]
  - OVERDOSE [None]
  - TOXICITY TO VARIOUS AGENTS [None]
  - TACHYCARDIA [None]
  - SUICIDE ATTEMPT [None]
  - FATIGUE [None]
